FAERS Safety Report 4795346-1 (Version None)
Quarter: 2005Q4

REPORT INFORMATION
  Report Type: 
  Country: None (occurrence: None)
  Receive Date: 20051012
  Receipt Date: 20050927
  Transmission Date: 20060501
  Serious: Yes (Death)
  Sender: FDA-Public Use
  Company Number: US-JNJFOC-20051000211

PATIENT
  Sex: Male

DRUGS (3)
  1. DURAGESIC-100 [Suspect]
     Indication: INTENTIONAL DRUG MISUSE
     Route: 065
  2. CITALOPRAM [Concomitant]
  3. NAPROXEN [Concomitant]

REACTIONS (2)
  - DEATH [None]
  - DRUG ABUSER [None]
